FAERS Safety Report 10084261 (Version 1)
Quarter: 2014Q2

REPORT INFORMATION
  Report Type: Report from Study
  Country: CA (occurrence: CA)
  Receive Date: 20140417
  Receipt Date: 20140417
  Transmission Date: 20141212
  Serious: Yes (Hospitalization)
  Sender: FDA-Public Use
  Company Number: CA-JNJFOC-20140408239

PATIENT
  Age: 34 Year
  Sex: Female
  Weight: 95 kg

DRUGS (4)
  1. REMICADE [Suspect]
     Indication: CROHN^S DISEASE
     Route: 042
     Dates: start: 20090407
  2. IMURAN [Concomitant]
     Route: 065
  3. TRICYCLEN [Concomitant]
     Route: 065
  4. IRON [Concomitant]
     Route: 065

REACTIONS (1)
  - Migraine [Recovered/Resolved]
